FAERS Safety Report 9474208 (Version 2)
Quarter: 2013Q3

REPORT INFORMATION
  Report Type: Spontaneous
  Country: BR (occurrence: BR)
  Receive Date: 20130823
  Receipt Date: 20130916
  Transmission Date: 20140515
  Serious: Yes (Death, Hospitalization)
  Sender: FDA-Public Use
  Company Number: BR-JNJFOC-20130809520

PATIENT
  Age: 68 Year
  Sex: Male

DRUGS (9)
  1. REMICADE [Suspect]
     Indication: PSORIATIC ARTHROPATHY
     Dosage: 15 DAYS AFTER FIRST INFUSION
     Route: 042
     Dates: start: 201307
  2. REMICADE [Suspect]
     Indication: PSORIATIC ARTHROPATHY
     Route: 042
     Dates: start: 20130626
  3. REMICADE [Suspect]
     Indication: PSORIATIC ARTHROPATHY
     Dosage: 30 DAYS AFTER 1ST INFUSION
     Route: 042
     Dates: start: 201307
  4. REMICADE [Suspect]
     Indication: PSORIASIS
     Route: 042
     Dates: start: 20130626
  5. REMICADE [Suspect]
     Indication: PSORIASIS
     Dosage: 30 DAYS AFTER 1ST INFUSION
     Route: 042
     Dates: start: 201307
  6. REMICADE [Suspect]
     Indication: PSORIASIS
     Dosage: 15 DAYS AFTER FIRST INFUSION
     Route: 042
     Dates: start: 201307
  7. LOSARTAN [Concomitant]
     Indication: HYPERTENSION
     Route: 065
  8. SELOZOK [Concomitant]
     Route: 065
  9. SOMALGIN [Concomitant]
     Route: 065

REACTIONS (2)
  - Death [Fatal]
  - Bacterial infection [Unknown]
